FAERS Safety Report 9356383 (Version 1)
Quarter: 2013Q2

REPORT INFORMATION
  Report Type: Spontaneous
  Country: DE (occurrence: DE)
  Receive Date: 20130619
  Receipt Date: 20130619
  Transmission Date: 20140414
  Serious: Yes (Other)
  Sender: FDA-Public Use
  Company Number: DE-OTSUKA-EU-2011-10207

PATIENT
  Sex: Female
  Weight: 30.4 kg

DRUGS (8)
  1. SAMSCA [Suspect]
     Indication: HYPONATRAEMIA
     Dosage: 30 MG MILLIGRAM(S), UNKNOWN
     Route: 065
  2. RIFAMPICIN [Suspect]
     Indication: PULMONARY TUBERCULOSIS
     Dosage: UNK, UNKNOWN
     Route: 048
  3. RIFAMPICIN [Suspect]
     Dosage: UNK, UNKNOWN
     Route: 042
  4. POTASSIUM [Concomitant]
     Indication: HYPOKALAEMIA
     Dosage: UNK, UNKNOWN
     Route: 048
  5. POTASSIUM [Concomitant]
     Dosage: UNK, UNKNOWN
     Route: 051
  6. ISONIAZIDE [Concomitant]
     Indication: PULMONARY TUBERCULOSIS
     Dosage: UNK, UNKNOWN
     Route: 042
  7. ETHAMBUTOL [Concomitant]
     Indication: PULMONARY TUBERCULOSIS
     Dosage: UNK, UNKNOWN
     Route: 042
  8. PYRAZINAMIDE [Concomitant]
     Indication: PULMONARY TUBERCULOSIS
     Dosage: UNK, UNKNOWN
     Route: 042

REACTIONS (2)
  - Drug interaction [Unknown]
  - Drug ineffective [Unknown]
